FAERS Safety Report 8034358-1 (Version None)
Quarter: 2012Q1

REPORT INFORMATION
  Report Type: 
  Country: None (occurrence: None)
  Receive Date: 20120110
  Receipt Date: 20120102
  Transmission Date: 20120608
  Serious: Yes (Hospitalization)
  Sender: FDA-Public Use
  Company Number: PHHO2011AR020832

PATIENT
  Sex: Male
  Weight: 103.4 kg

DRUGS (5)
  1. BLINDED ALISKIREN [Suspect]
     Indication: CARDIOVASCULAR DISORDER
     Dosage: CODE NOT BROKEN
     Route: 048
     Dates: start: 20100104, end: 20111107
  2. CLOPIDOGREL [Suspect]
     Indication: ANTICOAGULANT THERAPY
  3. BLINDED NO TREATMENT RECEIVED [Suspect]
     Indication: CARDIOVASCULAR DISORDER
     Dosage: CODE NOT BROKEN
     Route: 048
     Dates: start: 20100104, end: 20111107
  4. ASPIRIN [Suspect]
     Indication: ANTICOAGULANT THERAPY
     Dosage: 100 MG, QD
     Route: 048
     Dates: start: 20020801
  5. BLINDED PLACEBO [Suspect]
     Indication: CARDIOVASCULAR DISORDER
     Dosage: CODE NOT BROKEN
     Route: 048
     Dates: start: 20100104, end: 20111107

REACTIONS (2)
  - HAEMATURIA [None]
  - URINARY TRACT INFECTION [None]
